FAERS Safety Report 5300844-8 (Version None)
Quarter: 2007Q2

REPORT INFORMATION
  Report Type: 
  Country: None (occurrence: None)
  Receive Date: 20070411
  Receipt Date: 20070329
  Transmission Date: 20071010
  Serious: Yes (Hospitalization)
  Sender: FDA-Public Use
  Company Number: US015125

PATIENT
  Age: 53 Year
  Sex: Female
  Weight: 39.9165 kg

DRUGS (9)
  1. GABITRIL [Suspect]
     Indication: NEURALGIA
     Dosage: 4 MG BID ORAL
     Route: 048
     Dates: start: 20040601, end: 20050220
  2. GABITRIL [Suspect]
     Indication: RADICULOPATHY
     Dosage: 4 MG BID ORAL
     Route: 048
     Dates: start: 20040601, end: 20050220
  3. GABITRIL [Suspect]
     Indication: NEURALGIA
     Dosage: 12 MG Q12HR ORAL
     Route: 048
     Dates: start: 20050221, end: 20050401
  4. GABITRIL [Suspect]
     Indication: RADICULOPATHY
     Dosage: 12 MG Q12HR ORAL
     Route: 048
     Dates: start: 20050221, end: 20050401
  5. PROVIGIL [Concomitant]
  6. LEXAPRO [Concomitant]
  7. METHADONE HCL [Concomitant]
  8. HYDROCODONE [Concomitant]
  9. SKELAXIN [Concomitant]

REACTIONS (10)
  - APATHY [None]
  - ARRHYTHMIA [None]
  - BLOOD POTASSIUM DECREASED [None]
  - COMPUTERISED TOMOGRAM ABNORMAL [None]
  - ELECTROENCEPHALOGRAM ABNORMAL [None]
  - LOSS OF EMPLOYMENT [None]
  - MUSCLE SPASMS [None]
  - PARAESTHESIA [None]
  - SOMNOLENCE [None]
  - WEIGHT DECREASED [None]
